FAERS Safety Report 4950573-5 (Version None)
Quarter: 2006Q1

REPORT INFORMATION
  Report Type: 
  Country: None (occurrence: None)
  Receive Date: 20060321
  Receipt Date: 20060321
  Transmission Date: 20060701
  Serious: Yes (Life-Threatening)
  Sender: FDA-Public Use
  Company Number: None

PATIENT
  Age: 83 Year
  Sex: Female
  Weight: 52.1637 kg

DRUGS (4)
  1. FENTANYL [Suspect]
     Indication: SEDATIVE THERAPY
     Dosage: 100 MG IV PREOP
     Route: 042
     Dates: start: 20051228
  2. MIDAZOLAM [Suspect]
     Indication: SEDATIVE THERAPY
     Dosage: 2 MG IV PREOP
     Route: 042
     Dates: start: 20051228
  3. SKELAXIN [Concomitant]
  4. PERCOCET [Concomitant]

REACTIONS (4)
  - CARDIO-RESPIRATORY ARREST [None]
  - OXYGEN SATURATION DECREASED [None]
  - RESPIRATORY DEPRESSION [None]
  - SEDATION [None]
